FAERS Safety Report 12884885 (Version 1)
Quarter: 2016Q4

REPORT INFORMATION
  Report Type: Spontaneous
  Country: US (occurrence: US)
  Receive Date: 20161026
  Receipt Date: 20161026
  Transmission Date: 20170207
  Serious: Yes (Death)
  Sender: FDA-Public Use
  Company Number: US-PFIZER INC-2016485873

PATIENT
  Age: 76 Year
  Sex: Male
  Weight: 108.84 kg

DRUGS (1)
  1. SUTENT [Suspect]
     Active Substance: SUNITINIB MALATE
     Indication: LUNG NEOPLASM MALIGNANT
     Dosage: UNK UNK, 1X/DAY IN THE MORNING
     Route: 048
     Dates: end: 20161004

REACTIONS (2)
  - Coronary artery thrombosis [Fatal]
  - Product use issue [Fatal]
